FAERS Safety Report 23378580 (Version 1)
Quarter: 2024Q1

REPORT INFORMATION
  Report Type: Spontaneous
  Country: US (occurrence: None)
  Receive Date: 20240106
  Receipt Date: 20240106
  Transmission Date: 20240409
  Serious: No
  Sender: FDA-Public Use
  Company Number: None

PATIENT
  Age: 7 Year
  Sex: Female
  Weight: 25.65 kg

DRUGS (1)
  1. CEFDINIR [Suspect]
     Active Substance: CEFDINIR
     Indication: Ear infection
     Dosage: OTHER QUANTITY : 7 ML;?FREQUENCY : DAILY;?
     Route: 048
     Dates: start: 20231229, end: 20240106

REACTIONS (6)
  - Urticaria [None]
  - Peripheral swelling [None]
  - Joint swelling [None]
  - Musculoskeletal stiffness [None]
  - Pain in extremity [None]
  - Gait disturbance [None]

NARRATIVE: CASE EVENT DATE: 20240106
